FAERS Safety Report 8532875-9 (Version None)
Quarter: 2012Q3

REPORT INFORMATION
  Report Type: 
  Country: None (occurrence: None)
  Receive Date: 20120724
  Receipt Date: 20120719
  Transmission Date: 20120928
  Serious: Yes (Other)
  Sender: FDA-Public Use
  Company Number: US-AMGEN-USASP2011058950

PATIENT
  Age: 55 Year
  Sex: Male
  Weight: 106.12 kg

DRUGS (5)
  1. LOTREL [Concomitant]
     Indication: HYPERTENSION
     Dosage: UNK UNK, QD
     Route: 048
  2. ENBREL [Suspect]
     Indication: PSORIATIC ARTHROPATHY
     Dosage: 50 MG, QWK
     Route: 058
     Dates: start: 20051031, end: 20111023
  3. LIPITOR [Concomitant]
     Indication: CARDIAC DISORDER
     Dosage: 20 MG, QD
     Route: 048
     Dates: start: 19970101, end: 20111115
  4. ENBREL [Suspect]
     Dosage: 50 MG, 2 TIMES/WK
     Route: 058
     Dates: start: 20050628, end: 20051031
  5. COUMADIN [Concomitant]
     Indication: ATRIAL FIBRILLATION
     Dosage: 7 MG, QD
     Dates: start: 20031101

REACTIONS (7)
  - GRIP STRENGTH DECREASED [None]
  - BASEDOW'S DISEASE [None]
  - AUTOIMMUNE THYROIDITIS [None]
  - FATIGUE [None]
  - HYPERTHYROIDISM [None]
  - PSORIATIC ARTHROPATHY [None]
  - WEIGHT DECREASED [None]
